FAERS Safety Report 25783810 (Version 1)
Quarter: 2025Q3

REPORT INFORMATION
  Report Type: Spontaneous
  Country: JP (occurrence: JP)
  Receive Date: 20250910
  Receipt Date: 20250910
  Transmission Date: 20251021
  Serious: Yes (Other)
  Sender: ASTELLAS
  Company Number: JP-ASTELLAS-2025-AER-048476

PATIENT
  Age: 7 Decade
  Sex: Male

DRUGS (1)
  1. GILTERITINIB [Suspect]
     Active Substance: GILTERITINIB
     Indication: Acute myeloid leukaemia recurrent
     Route: 065

REACTIONS (5)
  - Acute myeloid leukaemia recurrent [Unknown]
  - Renal impairment [Unknown]
  - Sepsis [Unknown]
  - Hepatic enzyme increased [Unknown]
  - Inflammation [Unknown]
